FAERS Safety Report 14068160 (Version 2)
Quarter: 2017Q4

REPORT INFORMATION
  Report Type: Spontaneous
  Country: CA (occurrence: CA)
  Receive Date: 20171010
  Receipt Date: 20171021
  Transmission Date: 20180321
  Serious: Yes (Disabling, Other)
  Sender: FDA-Public Use
  Company Number: CA-AUROBINDO-AUR-APL-2017-41454

PATIENT
  Age: 102 Year
  Sex: Female
  Weight: 58 kg

DRUGS (2)
  1. AURO-CLOPIDOGREL TABLETS 75MG (CLOPIDOGREL BISULFATE) [Suspect]
     Active Substance: CLOPIDOGREL BISULFATE
     Indication: TRANSIENT ISCHAEMIC ATTACK
     Dosage: 75 MG, DAILY
     Route: 048
  2. SYNTHROID [Concomitant]
     Active Substance: LEVOTHYROXINE SODIUM
     Indication: PRODUCT USED FOR UNKNOWN INDICATION
     Route: 065

REACTIONS (2)
  - Product substitution issue [Recovered/Resolved]
  - Fall [Recovered/Resolved]
